FAERS Safety Report 4811360-1 (Version None)
Quarter: 2005Q4

REPORT INFORMATION
  Report Type: 
  Country: None (occurrence: None)
  Receive Date: 20051027
  Receipt Date: 20051006
  Transmission Date: 20060501
  Serious: Yes (Hospitalization)
  Sender: FDA-Public Use
  Company Number: DE-ABBOTT-05P-062-0313141-00

PATIENT
  Sex: Female
  Weight: 60 kg

DRUGS (6)
  1. HUMIRA [Suspect]
     Indication: RHEUMATOID ARTHRITIS
     Route: 058
     Dates: start: 20041115, end: 20050901
  2. PREDNISOLONE [Concomitant]
     Indication: RHEUMATOID ARTHRITIS
     Dates: start: 19870101
  3. RISEDRONATE SODIUM [Concomitant]
     Indication: OSTEOPOROSIS
     Dates: start: 20040501
  4. LEKOVIT CA [Concomitant]
     Indication: OSTEOPOROSIS
     Dates: start: 20040501
  5. ARTHROTEC [Concomitant]
     Indication: DRUG USE FOR UNKNOWN INDICATION
     Dates: start: 20050201
  6. PANTOPRAZOLE SODIUM [Concomitant]
     Indication: PROPHYLAXIS AGAINST GASTROINTESTINAL ULCER
     Dates: start: 20050201

REACTIONS (9)
  - ANAEMIA [None]
  - ASTHENIA [None]
  - C-REACTIVE PROTEIN INCREASED [None]
  - CONDITION AGGRAVATED [None]
  - FATIGUE [None]
  - GENERAL PHYSICAL HEALTH DETERIORATION [None]
  - NIGHT SWEATS [None]
  - RED BLOOD CELL SEDIMENTATION RATE INCREASED [None]
  - WEIGHT DECREASED [None]
